FAERS Safety Report 12936930 (Version 1)
Quarter: 2016Q4

REPORT INFORMATION
  Report Type: Spontaneous
  Country: US (occurrence: US)
  Receive Date: 20161114
  Receipt Date: 20161114
  Transmission Date: 20170207
  Serious: Yes (Other)
  Sender: FDA-Public Use
  Company Number: US-THE MENTHOLATUM COMPANY-1059495

PATIENT
  Age: 13 Year
  Sex: Male
  Weight: 72.73 kg

DRUGS (1)
  1. OXY ACNE TREATMENT [Suspect]
     Active Substance: BENZOYL PEROXIDE
     Route: 061
     Dates: start: 20161029, end: 20161029

REACTIONS (5)
  - Scab [None]
  - Expired product administered [None]
  - Erythema [None]
  - Hypersensitivity [Recovered/Resolved]
  - Swelling face [None]

NARRATIVE: CASE EVENT DATE: 20161029
